FAERS Safety Report 8201999-8 (Version None)
Quarter: 2012Q1

REPORT INFORMATION
  Report Type: 
  Country: None (occurrence: None)
  Receive Date: 20120312
  Receipt Date: 20120228
  Transmission Date: 20120608
  Serious: Yes (Death, Hospitalization)
  Sender: FDA-Public Use
  Company Number: ES-JNJFOC-20120301871

PATIENT
  Age: 45 Year
  Sex: Male

DRUGS (11)
  1. VENLAFAXINE [Suspect]
     Indication: PRODUCT USED FOR UNKNOWN INDICATION
     Route: 065
  2. ALPRAZOLAM [Suspect]
     Indication: ANXIETY
     Route: 065
  3. OXYCODONE HCL [Suspect]
     Indication: PAIN
     Route: 048
  4. NSAID [Suspect]
     Indication: PRODUCT USED FOR UNKNOWN INDICATION
     Route: 065
  5. FENTANYL [Suspect]
     Route: 062
  6. FENTANYL [Suspect]
     Route: 062
  7. FENTANYL CITRATE [Suspect]
     Indication: BREAKTHROUGH PAIN
     Dosage: APPROXIMATELY EIGHT UNITS PER DAY
     Route: 048
  8. OXYCODONE HCL [Suspect]
     Route: 048
  9. GABAPENTIN [Suspect]
     Indication: PRODUCT USED FOR UNKNOWN INDICATION
     Route: 065
  10. FENTANYL [Suspect]
     Indication: PAIN
     Route: 062
  11. STEROIDS NOS [Suspect]
     Indication: PRODUCT USED FOR UNKNOWN INDICATION
     Route: 065

REACTIONS (5)
  - OVERDOSE [None]
  - DEATH [None]
  - DRUG DEPENDENCE [None]
  - SELF-MEDICATION [None]
  - INTENTIONAL DRUG MISUSE [None]
